FAERS Safety Report 22014786 (Version 12)
Quarter: 2025Q2

REPORT INFORMATION
  Report Type: Report from Study
  Country: IL (occurrence: IL)
  Receive Date: 20230221
  Receipt Date: 20250530
  Transmission Date: 20250716
  Serious: Yes (Hospitalization, Other)
  Sender: NOVARTIS
  Company Number: IL-002147023-NVSC2023IL036122

PATIENT
  Sex: Female
  Weight: 6.9 kg

DRUGS (16)
  1. MEKINIST [Suspect]
     Active Substance: TRAMETINIB DIMETHYL SULFOXIDE
     Indication: Glioma
     Route: 048
     Dates: start: 20230108
  2. MEKINIST [Suspect]
     Active Substance: TRAMETINIB DIMETHYL SULFOXIDE
     Indication: Diencephalic syndrome
     Dosage: 0.025 MG/KG/DAY (0.17 MG/DAY, 3.4 ML SYRUP AT CONCENTRATION OF 0.05 MG/ML
     Route: 048
     Dates: start: 20230111, end: 20230205
  3. MEKINIST [Suspect]
     Active Substance: TRAMETINIB DIMETHYL SULFOXIDE
     Route: 048
     Dates: start: 20230831, end: 20230901
  4. MEKINIST [Suspect]
     Active Substance: TRAMETINIB DIMETHYL SULFOXIDE
     Route: 048
     Dates: start: 20240120
  5. MEKINIST [Suspect]
     Active Substance: TRAMETINIB DIMETHYL SULFOXIDE
     Route: 048
  6. MEKINIST [Suspect]
     Active Substance: TRAMETINIB DIMETHYL SULFOXIDE
     Dosage: 0.012 MG/KG, QD (DURING EPISODE OF COLITIS FROM CLOSTRIDIUM DIFFICILE, DOSE WAS DECREASED)
     Route: 048
  7. MEKINIST [Suspect]
     Active Substance: TRAMETINIB DIMETHYL SULFOXIDE
     Dosage: 0.025 MG/KG, QD (INCREASE GRADUALLY TO REGULAR DOSE OVER A FEW WEEKS)
     Route: 048
  8. MEKINIST [Suspect]
     Active Substance: TRAMETINIB DIMETHYL SULFOXIDE
     Dosage: 0.225 MG, QD, (4.5ML)/D (SYRUP) (STRENGTH 0.05 MG/ML) (DOSE CALCULATION METHOD FOR PEDIATRIC 0.025MK
     Route: 048
     Dates: end: 20250306
  9. VINCRISTINE [Concomitant]
     Active Substance: VINCRISTINE
     Indication: Chemotherapy
     Dosage: 0.9 MG, QW
     Route: 065
     Dates: start: 202211
  10. VINCRISTINE [Concomitant]
     Active Substance: VINCRISTINE
     Indication: Glioma
     Dosage: 0.3 MG, QW
     Route: 065
  11. CARBOPLATIN [Concomitant]
     Active Substance: CARBOPLATIN
     Indication: Chemotherapy
     Dosage: 7.5 MG, QW
     Route: 065
     Dates: start: 202211
  12. CARBOPLATIN [Concomitant]
     Active Substance: CARBOPLATIN
     Indication: Glioma
     Dosage: 14.4 MG, QW
     Route: 065
  13. PALONOSETRON HYDROCHLORIDE [Concomitant]
     Active Substance: PALONOSETRON HYDROCHLORIDE
     Indication: Product used for unknown indication
     Dosage: 0.1 MG, QW
     Route: 042
  14. PALONOSETRON HYDROCHLORIDE [Concomitant]
     Active Substance: PALONOSETRON HYDROCHLORIDE
     Dosage: 0.18 MG, QW
     Route: 065
  15. MEPRON [Concomitant]
     Active Substance: ATOVAQUONE
     Indication: Antifungal prophylaxis
     Dosage: 175 MG, QD
     Route: 048
  16. MEPRON [Concomitant]
     Active Substance: ATOVAQUONE
     Dosage: 200 MG, QD
     Route: 065

REACTIONS (21)
  - Hypertension [Recovered/Resolved]
  - Colitis [Recovered/Resolved]
  - Diarrhoea haemorrhagic [Recovered/Resolved]
  - Metastatic glioma [Not Recovered/Not Resolved]
  - Malignant neoplasm progression [Not Recovered/Not Resolved]
  - Clostridium difficile colitis [Recovered/Resolved]
  - Diarrhoea infectious [Unknown]
  - Pneumococcal sepsis [Recovered/Resolved]
  - Urinary tract infection pseudomonal [Recovered/Resolved]
  - Hyponatraemia [Unknown]
  - Diarrhoea [Unknown]
  - Giardiasis [Recovered/Resolved]
  - Diarrhoea [Recovered/Resolved]
  - Respiratory syncytial virus infection [Recovered/Resolved]
  - Ear infection staphylococcal [Recovered/Resolved]
  - Ear infection bacterial [Recovered/Resolved]
  - Ear infection bacterial [Recovered/Resolved]
  - Escherichia urinary tract infection [Recovered/Resolved]
  - Escherichia urinary tract infection [Recovered/Resolved]
  - Pyrexia [Recovered/Resolved]
  - Accidental overdose [Unknown]

NARRATIVE: CASE EVENT DATE: 20230205
